FAERS Safety Report 7989696-5 (Version None)
Quarter: 2011Q4

REPORT INFORMATION
  Report Type: 
  Country: None (occurrence: None)
  Receive Date: 20111219
  Receipt Date: 20111206
  Transmission Date: 20120403
  Serious: Yes (Hospitalization, Other)
  Sender: FDA-Public Use
  Company Number: US-ELI_LILLY_AND_COMPANY-US201101003121

PATIENT
  Sex: Male

DRUGS (6)
  1. TIKOSYN [Concomitant]
  2. CLONAZEPAM [Concomitant]
  3. SOTALOL HCL [Concomitant]
     Indication: HEART RATE ABNORMAL
  4. SYNTHROID [Concomitant]
  5. FORTEO [Suspect]
     Indication: OSTEOPOROSIS
     Dosage: 20 UG, QD
     Route: 065
  6. FORTEO [Suspect]
     Dosage: 20 UG, QD
     Route: 065

REACTIONS (6)
  - INJECTION SITE SWELLING [None]
  - ATRIAL FIBRILLATION [None]
  - PLEURAL EFFUSION [None]
  - INJECTION SITE PAIN [None]
  - BONE DENSITY DECREASED [None]
  - PERICARDIAL EFFUSION [None]
